FAERS Safety Report 7699188-9 (Version None)
Quarter: 2011Q3

REPORT INFORMATION
  Report Type: 
  Country: None (occurrence: None)
  Receive Date: 20110819
  Receipt Date: 20110816
  Transmission Date: 20111222
  Serious: Yes (Death, Hospitalization, Other)
  Sender: FDA-Public Use
  Company Number: US-BAYER-2011-046704

PATIENT
  Age: 64 Year
  Sex: Male

DRUGS (6)
  1. INTERFERON BETA-1B [Suspect]
     Indication: MULTIPLE SCLEROSIS
     Dosage: 4 MIU, QOD
     Route: 058
     Dates: start: 20110505, end: 20110524
  2. FLUOXETINE [Concomitant]
     Dosage: 20 MG, QD
  3. LEVAQUIN [Concomitant]
     Dosage: 500 MG, QD
     Route: 042
  4. MEPRON [Concomitant]
     Dosage: 750 MG, TID
  5. FLUCONAZOLE [Concomitant]
     Dosage: 200 MG, TIW
  6. NALTREXONE HYDROCHLORIDE [Concomitant]
     Dosage: 50 MG, QD

REACTIONS (3)
  - PNEUMOTHORAX [None]
  - DYSPNOEA [None]
  - MOTOR NEURONE DISEASE [None]
